FAERS Safety Report 7334357-9 (Version None)
Quarter: 2011Q1

REPORT INFORMATION
  Report Type: 
  Country: None (occurrence: None)
  Receive Date: 20110307
  Receipt Date: 20110119
  Transmission Date: 20110831
  Serious: No
  Sender: FDA-Public Use
  Company Number: US-KINGPHARMUSA00001-K201100079

PATIENT
  Age: 34 Year
  Sex: Male
  Weight: 64.853 kg

DRUGS (2)
  1. EMBEDA [Suspect]
     Indication: MUSCULOSKELETAL PAIN
     Dosage: UNK, BID
     Route: 048
     Dates: start: 20110111
  2. CLONAZEPAM [Concomitant]
     Indication: INSOMNIA
     Dosage: UNK

REACTIONS (2)
  - RASH [None]
  - PRURITUS [None]
